FAERS Safety Report 19684906 (Version 1)
Quarter: 2021Q3

REPORT INFORMATION
  Report Type: Spontaneous
  Country: US (occurrence: US)
  Receive Date: 20210810
  Receipt Date: 20210810
  Transmission Date: 20211014
  Serious: No
  Sender: FDA-Public Use
  Company Number: None

PATIENT

DRUGS (2)
  1. CHLOROXAZONE [Suspect]
     Active Substance: CHLORZOXAZONE
  2. METHOCARBAMOL. [Suspect]
     Active Substance: METHOCARBAMOL

REACTIONS (1)
  - Product dispensing error [None]
